FAERS Safety Report 21882867 (Version 1)
Quarter: 2023Q1

REPORT INFORMATION
  Report Type: Spontaneous
  Country: BG (occurrence: None)
  Receive Date: 20230119
  Receipt Date: 20230119
  Transmission Date: 20230418
  Serious: Yes (Death)
  Sender: FDA-Public Use
  Company Number: 2023A013777

PATIENT
  Sex: Female

DRUGS (4)
  1. KOSELUGO [Suspect]
     Active Substance: SELUMETINIB
     Indication: Neurofibromatosis
     Route: 048
  2. CLONAREX [Concomitant]
     Indication: Epilepsy
  3. TEGRETOL [Concomitant]
     Active Substance: CARBAMAZEPINE
     Indication: Epilepsy
  4. L-PIRACETAM [Concomitant]
     Indication: Epilepsy

REACTIONS (1)
  - Death [Fatal]
